FAERS Safety Report 4633975-6 (Version None)
Quarter: 2005Q2

REPORT INFORMATION
  Report Type: 
  Country: None (occurrence: None)
  Receive Date: 20050412
  Receipt Date: 20050308
  Transmission Date: 20051028
  Serious: Yes (Death)
  Sender: FDA-Public Use
  Company Number: 2005S1001094

PATIENT
  Age: 66 Year
  Sex: Female

DRUGS (12)
  1. CLOZAPINE [Suspect]
     Indication: SCHIZOPHRENIA
     Dosage: 300 MG; QAM; PO; 500 MG; HS; PO
     Route: 048
     Dates: start: 20040301
  2. CLOZAPINE [Suspect]
     Indication: SCHIZOPHRENIA
     Dosage: 300 MG; QAM; PO; 500 MG; HS; PO
     Route: 048
     Dates: start: 20040301
  3. LEVOTHYROXINE SODIUM [Concomitant]
  4. RANITIDINE [Concomitant]
  5. HYDROCHLORIDE [Concomitant]
  6. ACETYL SALICYLIC ACID USP BAT [Concomitant]
  7. FUROSEMIDE [Concomitant]
  8. POTASSIUM CHLORIDE [Concomitant]
  9. CLONAZEPAM [Concomitant]
  10. VITAMINS NOS [Concomitant]
  11. LAMOTRIGINE [Concomitant]
  12. DOCUSATE SODIUM [Concomitant]

REACTIONS (1)
  - DEATH [None]
